FAERS Safety Report 10008663 (Version 1)
Quarter: 2014Q1

REPORT INFORMATION
  Report Type: Spontaneous
  Country: US (occurrence: None)
  Receive Date: 20140228
  Receipt Date: 20140228
  Transmission Date: 20141002
  Serious: Yes (Other)
  Sender: FDA-Public Use
  Company Number: 225300

PATIENT
  Sex: Male

DRUGS (2)
  1. PICATO GEL [Suspect]
     Indication: ACTINIC KERATOSIS
     Dosage: 1 D), DERMAL
     Dates: start: 20140101, end: 20140103
  2. ZOCAR (SIMVASTATIN) [Concomitant]

REACTIONS (1)
  - Lymphadenopathy [None]
